FAERS Safety Report 9901705 (Version 2)
Quarter: 2014Q1

REPORT INFORMATION
  Report Type: Report from Study
  Country: AU (occurrence: AU)
  Receive Date: 20140217
  Receipt Date: 20140217
  Transmission Date: 20141002
  Serious: Yes (Death, Hospitalization, Other)
  Sender: FDA-Public Use
  Company Number: PHHY2014AU007302

PATIENT
  Age: 67 Year
  Sex: Male

DRUGS (18)
  1. CLOZARIL [Suspect]
     Dosage: 225 MG, NOCTE
     Dates: start: 19940927
  2. ASPIRIN [Concomitant]
     Dosage: 100 MG, MANE
  3. BISOPROLOL [Concomitant]
     Dosage: 1.25 MG, MANE
  4. FRUSEMIDE [Concomitant]
     Dosage: 40 TO 80 MG, MIDDAY
  5. FRUSEMIDE [Concomitant]
     Dosage: 20 TO 40MG, PRN
     Route: 042
  6. ATORVASTATIN [Concomitant]
     Dosage: 40 MG, NOCTE
  7. FLUTICASONE W/SALMETEROL [Concomitant]
     Dosage: 500/50UG, BID
  8. SODIUM VALPROATE [Concomitant]
     Dosage: 1500 MG, (500 MG MANE AND 1000 MG NOCTE)
  9. RAMIPRIL [Concomitant]
     Dosage: 2.5 MG, MANE
  10. IPRATROPIUM [Concomitant]
     Dosage: 21 UG, NOCTE
     Route: 055
  11. PIPTAZ [Concomitant]
     Dosage: 4G/500MG, Q8H
     Route: 042
  12. COLOXYL [Concomitant]
     Dosage: 2 DF, NOCTE
  13. SALBUTAMOL [Concomitant]
     Dosage: NEB EVERY 2 HOURS, PRN
     Route: 055
  14. SENNA [Concomitant]
     Dosage: 2 DF, NOCTE
  15. RESONIUM [Concomitant]
     Dosage: 30 MG, PRN
  16. MORPHINE [Concomitant]
     Dosage: 2.5 TO 5MG, PRN IM OR SUBCUTANEOUS PRN
  17. BUSCOPAN [Concomitant]
     Dosage: 20 TO 40 MG, PRN
     Route: 058
  18. MIDAZOLAM [Concomitant]
     Dosage: 2.5 TO 5 MG, PRN IM OR SUBCUTANEOUS PRN

REACTIONS (19)
  - Chronic obstructive pulmonary disease [Fatal]
  - Respiratory failure [Fatal]
  - Respiratory arrest [Fatal]
  - General physical health deterioration [Not Recovered/Not Resolved]
  - Myocardial ischaemia [Unknown]
  - Enterococcal bacteraemia [Unknown]
  - Atelectasis [Unknown]
  - Lung consolidation [Unknown]
  - Pulmonary oedema [Unknown]
  - Acute myocardial infarction [Unknown]
  - Consciousness fluctuating [Unknown]
  - Pulmonary congestion [Unknown]
  - Red blood cell count increased [Unknown]
  - Agitation [Unknown]
  - Hypercholesterolaemia [Unknown]
  - Hypertension [Unknown]
  - Body temperature increased [Unknown]
  - Lymphocyte count decreased [Unknown]
  - Platelet count increased [Unknown]
